FAERS Safety Report 6965157-7 (Version None)
Quarter: 2010Q3

REPORT INFORMATION
  Report Type: 
  Country: None (occurrence: None)
  Receive Date: 20100903
  Receipt Date: 20100830
  Transmission Date: 20110219
  Serious: Yes (Hospitalization)
  Sender: FDA-Public Use
  Company Number: US-B.I. PHARMACEUTICALS,INC./RIDGEFIELD-2010-BP-09452BP

PATIENT
  Sex: Male

DRUGS (12)
  1. SPIRIVA [Suspect]
     Indication: DYSPNOEA
     Dosage: 18 MCG
     Route: 055
     Dates: start: 20100808
  2. ADVAIR DISKUS 100/50 [Concomitant]
     Indication: DYSPNOEA
  3. LEVOTHYROXINE [Concomitant]
     Indication: HYPOTHYROIDISM
  4. METHADONE HCL [Concomitant]
     Indication: PAIN
  5. XANAX [Concomitant]
     Indication: ANXIETY
  6. AMIODARONE [Concomitant]
     Indication: CARDIAC DISORDER
  7. SPIRONOLACTONE [Concomitant]
     Indication: FLUID RETENTION
  8. LASIX [Concomitant]
     Indication: FLUID RETENTION
  9. ASPIRIN [Concomitant]
     Indication: PROPHYLAXIS
  10. ALBUTEROL [Concomitant]
     Indication: DYSPNOEA
  11. LISINOPRIL [Concomitant]
     Indication: HYPERTENSION
  12. VITAMINS [Concomitant]
     Indication: PROPHYLAXIS

REACTIONS (1)
  - DYSPNOEA [None]
